FAERS Safety Report 8502270-7 (Version None)
Quarter: 2012Q3

REPORT INFORMATION
  Report Type: 
  Country: None (occurrence: None)
  Receive Date: 20120711
  Receipt Date: 20120629
  Transmission Date: 20120928
  Serious: Yes (Other)
  Sender: FDA-Public Use
  Company Number: US-MYLANLABS-2012S1013467

PATIENT
  Sex: Female

DRUGS (2)
  1. ALENDRONATE SODIUM [Suspect]
     Route: 048
  2. FOSAMAX [Suspect]
     Route: 048

REACTIONS (2)
  - BONE DISORDER [None]
  - FEMUR FRACTURE [None]
